FAERS Safety Report 20477589 (Version 1)
Quarter: 2022Q1

REPORT INFORMATION
  Report Type: Spontaneous
  Country: US (occurrence: US)
  Receive Date: 20220216
  Receipt Date: 20220216
  Transmission Date: 20220423
  Serious: No
  Sender: FDA-Public Use
  Company Number: US-GSKCCFUS-Case-01295211_AE-75463

PATIENT
  Age: 72 Year
  Sex: Male

DRUGS (3)
  1. FLOVENT HFA [Suspect]
     Active Substance: FLUTICASONE PROPIONATE
     Indication: Product used for unknown indication
     Dosage: 110 MCG/MG
     Dates: start: 2021
  2. NYSTATIN [Suspect]
     Active Substance: NYSTATIN
     Indication: Dry mouth
     Dosage: UNK
     Dates: start: 202201
  3. NYSTATIN [Suspect]
     Active Substance: NYSTATIN
     Indication: Aptyalism

REACTIONS (5)
  - Oral candidiasis [Not Recovered/Not Resolved]
  - Hypoaesthesia oral [Not Recovered/Not Resolved]
  - Dry mouth [Not Recovered/Not Resolved]
  - Aptyalism [Not Recovered/Not Resolved]
  - Drug ineffective [Unknown]

NARRATIVE: CASE EVENT DATE: 20220101
